FAERS Safety Report 4284945-1 (Version None)
Quarter: 2004Q1

REPORT INFORMATION
  Report Type: 
  Country: None (occurrence: None)
  Receive Date: 20040202
  Receipt Date: 20040120
  Transmission Date: 20041129
  Serious: Yes (Hospitalization)
  Sender: FDA-Public Use
  Company Number: US-JNJFOC-20040104268

PATIENT
  Age: 41 Year
  Sex: Female
  Weight: 62.1428 kg

DRUGS (12)
  1. INFLIXIMAB  (INFLIXIMAB, RECOMBINANT) LYOPHILIZED POWDER [Suspect]
     Indication: CROHN'S DISEASE
     Dosage: SEE IMAGE
     Route: 042
     Dates: start: 20020612
  2. INFLIXIMAB  (INFLIXIMAB, RECOMBINANT) LYOPHILIZED POWDER [Suspect]
     Indication: CROHN'S DISEASE
     Dosage: SEE IMAGE
     Route: 042
     Dates: start: 20021216
  3. INFLIXIMAB  (INFLIXIMAB, RECOMBINANT) LYOPHILIZED POWDER [Suspect]
     Indication: CROHN'S DISEASE
     Dosage: SEE IMAGE
     Route: 042
     Dates: start: 20030131
  4. INFLIXIMAB  (INFLIXIMAB, RECOMBINANT) LYOPHILIZED POWDER [Suspect]
     Indication: CROHN'S DISEASE
     Dosage: SEE IMAGE
     Route: 042
     Dates: start: 20030327
  5. INFLIXIMAB  (INFLIXIMAB, RECOMBINANT) LYOPHILIZED POWDER [Suspect]
     Indication: CROHN'S DISEASE
     Dosage: SEE IMAGE
     Route: 042
     Dates: start: 20030627
  6. INFLIXIMAB  (INFLIXIMAB, RECOMBINANT) LYOPHILIZED POWDER [Suspect]
     Indication: CROHN'S DISEASE
     Dosage: SEE IMAGE
     Route: 042
     Dates: start: 20030829
  7. INFLIXIMAB  (INFLIXIMAB, RECOMBINANT) LYOPHILIZED POWDER [Suspect]
     Indication: CROHN'S DISEASE
     Dosage: SEE IMAGE
     Route: 042
     Dates: start: 20031024
  8. MERCAPTOPURINE [Concomitant]
  9. BUDESONIDE (BUDESONIDE) [Concomitant]
  10. CORTICOSTEROIDS (CORTICOSTEROIDS) [Concomitant]
  11. NARCOTIC ANALGESICS (ANALGESICS [Concomitant]
  12. ANTIDEPRESSANTES (ANTIDEPRESSANTS) [Concomitant]

REACTIONS (2)
  - FISTULA [None]
  - HAEMATOCHEZIA [None]
